FAERS Safety Report 5041763-4 (Version None)
Quarter: 2006Q2

REPORT INFORMATION
  Report Type: 
  Country: None (occurrence: None)
  Receive Date: 20060630
  Receipt Date: 20060617
  Transmission Date: 20061013
  Serious: Yes (Other)
  Sender: FDA-Public Use
  Company Number: 2006079136

PATIENT
  Age: 62 Year
  Sex: 0

DRUGS (1)
  1. BEXTRA [Suspect]

REACTIONS (1)
  - STEVENS-JOHNSON SYNDROME [None]
